FAERS Safety Report 7419522-4 (Version None)
Quarter: 2011Q2

REPORT INFORMATION
  Report Type: 
  Country: None (occurrence: None)
  Receive Date: 20110418
  Receipt Date: 20110405
  Transmission Date: 20111010
  Serious: Yes (Hospitalization)
  Sender: FDA-Public Use
  Company Number: PHHY2011MX29534

PATIENT
  Age: 66 Year
  Sex: Male

DRUGS (3)
  1. MICARDIS HCT [Concomitant]
  2. DIOVAN [Suspect]
     Indication: HYPERTENSION
     Dosage: 40 MG, DAILY
  3. GALVUS MET [Concomitant]
     Dosage: 2 DF, UNK
     Dates: start: 20110301

REACTIONS (3)
  - CHOLELITHIASIS [None]
  - HEPATIC STEATOSIS [None]
  - ABDOMINAL PAIN [None]
